FAERS Safety Report 14354165 (Version 1)
Quarter: 2018Q1

REPORT INFORMATION
  Report Type: Spontaneous
  Country: FR (occurrence: FR)
  Receive Date: 20180105
  Receipt Date: 20180105
  Transmission Date: 20180509
  Serious: Yes (Hospitalization)
  Sender: FDA-Public Use
  Company Number: FR-BAUSCH-BL-2018-000331

PATIENT
  Age: 83 Year
  Sex: Male
  Weight: 103 kg

DRUGS (6)
  1. AMLODIPINE [Concomitant]
     Active Substance: AMLODIPINE BESYLATE
     Indication: PRODUCT USED FOR UNKNOWN INDICATION
     Route: 048
  2. AXEPIM [Suspect]
     Active Substance: CEFEPIME HYDROCHLORIDE
     Indication: OSTEITIS
     Dosage: POWDER FOR PARENTERAL USE
     Route: 065
     Dates: start: 20171201, end: 20171205
  3. VANCOMYCINE [Suspect]
     Active Substance: VANCOMYCIN
     Indication: OSTEITIS
     Dosage: EVERY 12 HOURS
     Route: 042
     Dates: start: 20171201, end: 20171205
  4. CEFOXITIN [Suspect]
     Active Substance: CEFOXITIN SODIUM
     Indication: OSTEITIS
     Dosage: EVERY 12 HOURS
     Route: 042
     Dates: start: 20171205, end: 20171213
  5. CALCIPARINE [Concomitant]
     Active Substance: HEPARIN CALCIUM
     Indication: PRODUCT USED FOR UNKNOWN INDICATION
  6. OFLOXACINE [Suspect]
     Active Substance: OFLOXACIN
     Indication: OSTEITIS
     Route: 048
     Dates: start: 20171205, end: 20171213

REACTIONS (1)
  - Acute kidney injury [Recovering/Resolving]

NARRATIVE: CASE EVENT DATE: 20171207
